FAERS Safety Report 8380312-X (Version None)
Quarter: 2012Q2

REPORT INFORMATION
  Report Type: 
  Country: None (occurrence: None)
  Receive Date: 20120523
  Receipt Date: 20120517
  Transmission Date: 20120825
  Serious: Yes (Disabling, Other)
  Sender: FDA-Public Use
  Company Number: US-PFIZER INC-2012120544

PATIENT
  Sex: Female
  Weight: 72.562 kg

DRUGS (6)
  1. OXYCODONE HCL [Suspect]
     Dosage: UNK
  2. EFFEXOR XR [Suspect]
     Dosage: UNK
     Route: 048
     Dates: start: 20090101
  3. ASCORBIC ACID [Concomitant]
     Dosage: UNK
  4. FEXMID [Suspect]
     Indication: MUSCLE RELAXANT THERAPY
     Dosage: UNK
  5. ZANAFLEX [Suspect]
     Indication: MUSCLE DISORDER
     Dosage: UNK
  6. EFFEXOR XR [Suspect]
     Indication: DEPRESSION
     Dosage: 300 MG, DAILY
     Route: 048
     Dates: start: 20020101

REACTIONS (9)
  - NERVE INJURY [None]
  - INTERVERTEBRAL DISC INJURY [None]
  - MIGRAINE [None]
  - HYPERSENSITIVITY [None]
  - INTERVERTEBRAL DISC DISORDER [None]
  - INTERVERTEBRAL DISC PROTRUSION [None]
  - DRUG INEFFECTIVE [None]
  - SPINAL CORD DISORDER [None]
  - GASTRIC DISORDER [None]
